FAERS Safety Report 16399532 (Version 1)
Quarter: 2019Q2

REPORT INFORMATION
  Report Type: Spontaneous
  Country: US (occurrence: US)
  Receive Date: 20190606
  Receipt Date: 20190606
  Transmission Date: 20190711
  Serious: Yes (Other)
  Sender: FDA-Public Use
  Company Number: US-SA-2017SA267115

PATIENT
  Sex: Female
  Weight: 81.64 kg

DRUGS (7)
  1. METFORMIN [Concomitant]
     Active Substance: METFORMIN HYDROCHLORIDE
     Dosage: UNK UNK,UNK
     Route: 065
     Dates: start: 2009
  2. LEVOTHYROXINE. [Concomitant]
     Active Substance: LEVOTHYROXINE
     Dosage: UNK UNK,UNK
     Route: 065
     Dates: start: 2007
  3. PARAPLATIN [Concomitant]
     Active Substance: CARBOPLATIN
  4. ARIMIDEX [Concomitant]
     Active Substance: ANASTROZOLE
  5. TAXOTERE [Suspect]
     Active Substance: DOCETAXEL
     Indication: INVASIVE BREAST CARCINOMA
     Dosage: 147 MG,Q3W
     Route: 042
     Dates: start: 20120229, end: 20120229
  6. METOPROLOL. [Concomitant]
     Active Substance: METOPROLOL
     Dosage: UNK UNK,UNK
     Route: 065
     Dates: start: 1994
  7. TAXOTERE [Suspect]
     Active Substance: DOCETAXEL
     Dosage: 147 MG,Q3W
     Route: 042
     Dates: start: 20120613, end: 20120613

REACTIONS (1)
  - Alopecia [Not Recovered/Not Resolved]

NARRATIVE: CASE EVENT DATE: 201203
